FAERS Safety Report 6574171-5 (Version None)
Quarter: 2010Q1

REPORT INFORMATION
  Report Type: 
  Country: None (occurrence: None)
  Receive Date: 20100208
  Receipt Date: 20100114
  Transmission Date: 20100710
  Serious: No
  Sender: FDA-Public Use
  Company Number: US-BAYER-201012159NA

PATIENT
  Age: 36 Year
  Sex: Male
  Weight: 86 kg

DRUGS (1)
  1. MAGNEVIST [Suspect]
     Indication: NUCLEAR MAGNETIC RESONANCE IMAGING
     Dosage: AS USED: 20 ML
     Route: 042
     Dates: start: 20100114, end: 20100114

REACTIONS (3)
  - DYSGEUSIA [None]
  - FEELING OF BODY TEMPERATURE CHANGE [None]
  - SALIVA ALTERED [None]
